FAERS Safety Report 19695371 (Version 1)
Quarter: 2021Q3

REPORT INFORMATION
  Report Type: Spontaneous
  Country: IE (occurrence: IE)
  Receive Date: 20210812
  Receipt Date: 20210812
  Transmission Date: 20211014
  Serious: Yes (Other)
  Sender: FDA-Public Use
  Company Number: IE-FRESENIUS KABI-FK202108517

PATIENT
  Age: 39 Year
  Sex: Female

DRUGS (2)
  1. LABETALOL HYDROCHLORIDE. [Suspect]
     Active Substance: LABETALOL HYDROCHLORIDE
     Indication: PRE-ECLAMPSIA
     Route: 065
  2. MAGNESIUM SULFATE (MANUFACTURER UNKNOWN) [Suspect]
     Active Substance: MAGNESIUM SULFATE
     Indication: PRE-ECLAMPSIA
     Dosage: LARGE BOLUS
     Route: 065

REACTIONS (4)
  - Incorrect dosage administered [Recovered/Resolved]
  - Toxicity to various agents [Recovered/Resolved]
  - Exposure during pregnancy [Recovered/Resolved]
  - Medication error [Recovered/Resolved]
